FAERS Safety Report 7933774 (Version 2)
Quarter: 2014Q1

REPORT INFORMATION
  Report Type: Spontaneous
  Country: US (occurrence: US)
  Receive Date: 20110506
  Receipt Date: 20140113
  Transmission Date: 20141002
  Serious: Yes (Other)
  Sender: FDA-Public Use
  Company Number: US-ROCHE-749894

PATIENT
  Age: 24 Year
  Sex: Female
  Weight: 49.9 kg

DRUGS (2)
  1. ACCUTANE [Suspect]
     Indication: ACNE
     Dosage: DOSE: 40 MG QD, 60 MG, 80 MG QD
     Route: 048
     Dates: start: 200510, end: 200604
  2. ACCUTANE [Suspect]
     Route: 048
     Dates: start: 200709, end: 20080401

REACTIONS (13)
  - Colitis ulcerative [Unknown]
  - Gastrointestinal injury [Unknown]
  - Proctitis ulcerative [Unknown]
  - Inflammatory bowel disease [Unknown]
  - Irritable bowel syndrome [Unknown]
  - Blood cholesterol increased [Unknown]
  - Lip dry [Unknown]
  - Epistaxis [Unknown]
  - Dry skin [Unknown]
  - Varicose vein [Unknown]
  - Dry eye [Unknown]
  - Arthralgia [Unknown]
  - Alopecia [Unknown]
